APPROVED DRUG PRODUCT: RISPERIDONE
Active Ingredient: RISPERIDONE
Strength: 2MG
Dosage Form/Route: TABLET;ORAL
Application: A078871 | Product #004 | TE Code: AB
Applicant: NOVITIUM PHARMA LLC
Approved: Oct 9, 2008 | RLD: No | RS: No | Type: RX